FAERS Safety Report 16694673 (Version 1)
Quarter: 2019Q3

REPORT INFORMATION
  Report Type: Spontaneous
  Country: US (occurrence: US)
  Receive Date: 20190812
  Receipt Date: 20190812
  Transmission Date: 20191004
  Serious: Yes (Other)
  Sender: FDA-Public Use
  Company Number: US-BIOGEN-2019BI00771629

PATIENT
  Sex: Female
  Weight: 26.8 kg

DRUGS (3)
  1. SPINRAZA [Suspect]
     Active Substance: NUSINERSEN
     Indication: SPINAL MUSCULAR ATROPHY
     Route: 037
     Dates: start: 20170614, end: 20170712
  2. SPINRAZA [Suspect]
     Active Substance: NUSINERSEN
     Dosage: 12MG/5ML
     Route: 037
     Dates: start: 20170809
  3. PROAIR HFA [Concomitant]
     Active Substance: ALBUTEROL SULFATE
     Indication: WHEEZING
     Route: 055

REACTIONS (5)
  - Restrictive pulmonary disease [Unknown]
  - Chronic respiratory failure [Unknown]
  - Sleep apnoea syndrome [Unknown]
  - Obstructive airways disorder [Unknown]
  - Scoliosis [Unknown]
